FAERS Safety Report 17515149 (Version 2)
Quarter: 2020Q2

REPORT INFORMATION
  Report Type: Report from Study
  Country: US (occurrence: US)
  Receive Date: 20200309
  Receipt Date: 20200513
  Transmission Date: 20200713
  Serious: No
  Sender: FDA-Public Use
  Company Number: NVSC2020US065692

PATIENT
  Sex: Male

DRUGS (1)
  1. COSENTYX [Suspect]
     Active Substance: SECUKINUMAB
     Indication: PSORIATIC ARTHROPATHY
     Dosage: 300 MG, QMO
     Route: 058

REACTIONS (6)
  - Decreased immune responsiveness [Unknown]
  - Infection [Unknown]
  - Product use issue [Unknown]
  - Dacryostenosis acquired [Unknown]
  - Gingivitis [Unknown]
  - Nasopharyngitis [Unknown]
